FAERS Safety Report 4662485-5 (Version None)
Quarter: 2005Q2

REPORT INFORMATION
  Report Type: 
  Country: None (occurrence: None)
  Receive Date: 20050516
  Receipt Date: 20050217
  Transmission Date: 20051028
  Serious: Yes (Other)
  Sender: FDA-Public Use
  Company Number: BE-ROCHE-395873

PATIENT
  Age: 73 Year
  Sex: Female
  Weight: 95 kg

DRUGS (1)
  1. XELODA [Suspect]
     Indication: COLORECTAL CANCER
     Dosage: STRENGTH REPORTED AS: 2000.
     Route: 048
     Dates: start: 20031103, end: 20041008

REACTIONS (1)
  - HAEMOLYSIS [None]
